FAERS Safety Report 9780792 (Version 1)
Quarter: 2013Q4

REPORT INFORMATION
  Report Type: Spontaneous
  Country: IT (occurrence: IT)
  Receive Date: 20131224
  Receipt Date: 20131224
  Transmission Date: 20140711
  Serious: Yes (Life-Threatening, Hospitalization, Other)
  Sender: FDA-Public Use
  Company Number: IT-ELI_LILLY_AND_COMPANY-IT201312007024

PATIENT
  Age: 59 Year
  Sex: Female

DRUGS (4)
  1. OLANZAPINE [Suspect]
     Indication: PSYCHOTIC DISORDER
     Dosage: 20 MG, QD
     Route: 048
     Dates: start: 20130203, end: 20130527
  2. LORAZEPAM [Suspect]
     Indication: PSYCHOTIC DISORDER
     Dosage: 2.5 MG, QD
     Route: 048
     Dates: start: 20130203, end: 20130527
  3. POLYETHYLENE GLYCOL [Concomitant]
     Indication: PRODUCT USED FOR UNKNOWN INDICATION
     Dosage: 1 DF, UNKNOWN
     Route: 065
  4. METFORMIN [Concomitant]
     Indication: PRODUCT USED FOR UNKNOWN INDICATION
     Dosage: 1 DF, UNKNOWN
     Route: 065

REACTIONS (2)
  - Hyponatraemia [Recovering/Resolving]
  - Coma [Recovering/Resolving]
